FAERS Safety Report 9387657 (Version 1)
Quarter: 2013Q3

REPORT INFORMATION
  Report Type: Spontaneous
  Country: JP (occurrence: None)
  Receive Date: 20130703
  Receipt Date: 20130703
  Transmission Date: 20140515
  Serious: Yes (Other)
  Sender: FDA-Public Use
  Company Number: JP-012147

PATIENT
  Age: 70 Year
  Sex: Male

DRUGS (1)
  1. DEGARELIX [Suspect]
     Indication: PROSTATE CANCER
     Route: 058
     Dates: start: 20130615, end: 20130615

REACTIONS (4)
  - Pain [None]
  - Cold sweat [None]
  - Shock [None]
  - Intentional drug misuse [None]
